FAERS Safety Report 8492205-8 (Version None)
Quarter: 2012Q3

REPORT INFORMATION
  Report Type: 
  Country: None (occurrence: None)
  Receive Date: 20120706
  Receipt Date: 20120702
  Transmission Date: 20120928
  Serious: Yes (Hospitalization, Disabling)
  Sender: FDA-Public Use
  Company Number: US-BAYER-2012-024483

PATIENT
  Age: 43 Year
  Sex: Female
  Weight: 70.295 kg

DRUGS (11)
  1. MULTI-VITAMINS [Concomitant]
     Dosage: UNK
     Dates: start: 20000101
  2. YASMIN [Suspect]
     Indication: PREMENSTRUAL SYNDROME
     Dosage: UNK
     Route: 048
     Dates: start: 20080601, end: 20090801
  3. FLONASE [Concomitant]
     Dosage: 50 MCG
     Dates: start: 20090827
  4. DROSPIRENONE AND ETHINYL ESTRADIOL [Suspect]
     Indication: PREMENSTRUAL SYNDROME
     Dosage: UNK
     Route: 048
     Dates: start: 20080601, end: 20090801
  5. OXYCODONE AND ACETAMINOPHEN [Concomitant]
     Dosage: 5/325 MG TABLET
     Dates: start: 20090727
  6. FLOVENT HFA [Concomitant]
     Dosage: 110 MCG
     Dates: start: 20090727
  7. YASMIN [Suspect]
  8. PROCTOSOL HC [Concomitant]
     Dosage: 2.5 UNK, UNK
     Dates: start: 20090622
  9. ALBUTEROL SULFATE [Concomitant]
     Dosage: UNK
     Dates: start: 20090727
  10. DROSPIRENONE AND ETHINYL ESTRADIOL [Suspect]
  11. NSAID'S [Concomitant]
     Dosage: UNK UNK, PRN

REACTIONS (10)
  - PAIN IN EXTREMITY [None]
  - PAIN [None]
  - QUALITY OF LIFE DECREASED [None]
  - DEFORMITY [None]
  - ARTHRALGIA [None]
  - OEDEMA PERIPHERAL [None]
  - JOINT SWELLING [None]
  - LIMB DEFORMITY [None]
  - DEEP VEIN THROMBOSIS [None]
  - INJURY [None]
